FAERS Safety Report 21511773 (Version 2)
Quarter: 2023Q1

REPORT INFORMATION
  Report Type: Report from Study
  Country: US (occurrence: US)
  Receive Date: 20221027
  Receipt Date: 20230307
  Transmission Date: 20230417
  Serious: No
  Sender: FDA-Public Use
  Company Number: US-ABBVIE-4150190

PATIENT
  Age: 39 Year
  Sex: Male

DRUGS (3)
  1. SKYRIZI [Suspect]
     Active Substance: RISANKIZUMAB-RZAA
     Indication: Psoriasis
     Dosage: WEEK 4 FORM STRENGTH 150 MG,
     Route: 058
     Dates: start: 20220701, end: 20220701
  2. SKYRIZI [Suspect]
     Active Substance: RISANKIZUMAB-RZAA
     Dosage: WEEK 0, FORM STRENGTH: 150 MG
     Route: 058
     Dates: start: 20220603, end: 20220603
  3. SKYRIZI [Suspect]
     Active Substance: RISANKIZUMAB-RZAA
     Dosage: WEEK 12 FORM STRENGTH 150 MG,
     Route: 058
     Dates: start: 20220923

REACTIONS (5)
  - Psoriasis [Unknown]
  - General physical health deterioration [Not Recovered/Not Resolved]
  - General physical health deterioration [Unknown]
  - Loss of personal independence in daily activities [Unknown]
  - Therapeutic product effect incomplete [Unknown]

NARRATIVE: CASE EVENT DATE: 20220901
